FAERS Safety Report 7349393-6 (Version None)
Quarter: 2011Q1

REPORT INFORMATION
  Report Type: 
  Country: None (occurrence: None)
  Receive Date: 20110314
  Receipt Date: 20101111
  Transmission Date: 20110831
  Serious: No
  Sender: FDA-Public Use
  Company Number: US-ABBOTT-10P-163-0685044-00

PATIENT
  Sex: Male
  Weight: 93.07 kg

DRUGS (5)
  1. DEPAKOTE [Suspect]
     Indication: BIPOLAR DISORDER
     Dates: start: 19980101
  2. ATENOLOL [Concomitant]
     Indication: HYPERTENSION
  3. DEPAKOTE [Suspect]
     Indication: NARCISSISTIC PERSONALITY DISORDER
  4. DEPAKOTE [Suspect]
     Indication: BODY DYSMORPHIC DISORDER
  5. UNKNOWN ACID REFLUX MEDICATION [Concomitant]
     Indication: GASTROOESOPHAGEAL REFLUX DISEASE

REACTIONS (1)
  - ALOPECIA [None]
